FAERS Safety Report 4555298-6 (Version None)
Quarter: 2005Q1

REPORT INFORMATION
  Report Type: 
  Country: None (occurrence: None)
  Receive Date: 20041227
  Receipt Date: 20040615
  Transmission Date: 20050727
  Serious: No
  Sender: FDA-Public Use
  Company Number: US080257

PATIENT

DRUGS (1)
  1. ARANESP [Suspect]
     Indication: ANAEMIA OF MALIGNANT DISEASE
     Dates: start: 20040501

REACTIONS (2)
  - HAEMOLYSIS [None]
  - HYPERSENSITIVITY [None]
